FAERS Safety Report 6567384-X (Version None)
Quarter: 2010Q1

REPORT INFORMATION
  Report Type: 
  Country: None (occurrence: None)
  Receive Date: 20100202
  Receipt Date: 20100128
  Transmission Date: 20100710
  Serious: Yes (Death, Other)
  Sender: FDA-Public Use
  Company Number: PHHY2009CA50203

PATIENT
  Age: 64 Year
  Sex: Male

DRUGS (5)
  1. CYCLOSPORINE [Suspect]
     Indication: RENAL TRANSPLANT
     Dosage: UNK
     Dates: start: 19840101, end: 20020101
  2. PREDNISONE [Suspect]
     Indication: RENAL TRANSPLANT
  3. AZATHIOPRINE [Concomitant]
     Indication: RENAL TRANSPLANT
  4. MYCOPHENOLATE MOFETIL [Concomitant]
  5. ANTI-THYMOCYTE GLOBULIN NOS [Concomitant]

REACTIONS (13)
  - CARDIAC ARREST [None]
  - CHOLECYSTITIS [None]
  - EPSTEIN-BARR VIRUS ASSOCIATED LYMPHOPROLIFERATIVE DISORDER [None]
  - EPSTEIN-BARR VIRUS INFECTION [None]
  - GAMMOPATHY [None]
  - LYMPHOMA [None]
  - PLASMACYTOMA [None]
  - RADIOTHERAPY TO SKIN [None]
  - SKIN LESION [None]
  - SKIN LESION EXCISION [None]
  - SKIN NODULE [None]
  - SQUAMOUS CELL CARCINOMA OF SKIN [None]
  - TRANSPLANT REJECTION [None]
